FAERS Safety Report 7983051-X (Version None)
Quarter: 2011Q4

REPORT INFORMATION
  Report Type: 
  Country: None (occurrence: None)
  Receive Date: 20111215
  Receipt Date: 20111212
  Transmission Date: 20120403
  Serious: Yes (Other)
  Sender: FDA-Public Use
  Company Number: US-ELI_LILLY_AND_COMPANY-US201112003510

PATIENT
  Sex: Male

DRUGS (2)
  1. HUMALOG [Suspect]
     Indication: TYPE 1 DIABETES MELLITUS
     Dosage: 10 U, TID
  2. LANTUS [Concomitant]
     Dosage: UNK

REACTIONS (7)
  - VISUAL ACUITY REDUCED [None]
  - PANCREATIC DISORDER [None]
  - BLOOD GLUCOSE FLUCTUATION [None]
  - DRUG DOSE OMISSION [None]
  - RETINAL HAEMORRHAGE [None]
  - CATARACT [None]
  - GLYCOSYLATED HAEMOGLOBIN INCREASED [None]
